FAERS Safety Report 9221784 (Version 1)
Quarter: 2013Q1

REPORT INFORMATION
  Report Type: Spontaneous
  Country: US (occurrence: None)
  Receive Date: 20120831
  Receipt Date: 20120831
  Transmission Date: 20140127
  Serious: Yes (Death)
  Sender: FDA-Public Use
  Company Number: 163-22393-12052214

PATIENT
  Age: 29 Year
  Sex: Male

DRUGS (2)
  1. ISTODAX [Suspect]
     Indication: HAEMATOPOIETIC NEOPLASM
     Route: 042
  2. MORPHINE (MORPHINE) (DROPS) [Concomitant]

REACTIONS (1)
  - Death [None]
